FAERS Safety Report 6596768-9 (Version None)
Quarter: 2010Q1

REPORT INFORMATION
  Report Type: 
  Country: None (occurrence: None)
  Receive Date: 20100212
  Receipt Date: 20100204
  Transmission Date: 20100710
  Serious: Yes (Other)
  Sender: FDA-Public Use
  Company Number: 8043211

PATIENT
  Sex: Male
  Weight: 3.6 kg

DRUGS (6)
  1. KEPPRA [Suspect]
     Indication: EPILEPSY
     Dosage: (500 MG, DAILY TRANSPLACENTAL)
     Route: 064
     Dates: end: 20081115
  2. KEPPRA [Suspect]
     Dosage: (3000 MG, DAILY)
     Dates: start: 20081115
  3. DEPAKOTE [Concomitant]
  4. FOLIC ACID [Concomitant]
  5. VITAMINS [Concomitant]
  6. VITAMIN TAB [Concomitant]

REACTIONS (3)
  - HAEMANGIOMA [None]
  - MATERNAL DRUGS AFFECTING FOETUS [None]
  - PREMATURE BABY [None]
